FAERS Safety Report 13548236 (Version 2)
Quarter: 2017Q4

REPORT INFORMATION
  Report Type: Spontaneous
  Country: US (occurrence: US)
  Receive Date: 20170516
  Receipt Date: 20171006
  Transmission Date: 20180320
  Serious: No
  Sender: FDA-Public Use
  Company Number: US-JNJFOC-20170315133

PATIENT
  Age: 22 Year
  Sex: Female
  Weight: 54.43 kg

DRUGS (2)
  1. WOMENS ROGAINE [Suspect]
     Active Substance: MINOXIDIL
     Route: 061
  2. WOMENS ROGAINE [Suspect]
     Active Substance: MINOXIDIL
     Indication: ALOPECIA
     Route: 061
     Dates: start: 201701

REACTIONS (2)
  - Wrong technique in product usage process [Not Recovered/Not Resolved]
  - Application site exfoliation [Not Recovered/Not Resolved]

NARRATIVE: CASE EVENT DATE: 201701
